FAERS Safety Report 4979993-X (Version None)
Quarter: 2006Q2

REPORT INFORMATION
  Report Type: 
  Country: None (occurrence: None)
  Receive Date: 20060421
  Receipt Date: 20050218
  Transmission Date: 20061013
  Serious: Yes (Hospitalization, Disabling)
  Sender: FDA-Public Use
  Company Number: US-MERCK-0502USA02876

PATIENT
  Age: 74 Year
  Sex: Female
  Weight: 74 kg

DRUGS (8)
  1. VIOXX [Suspect]
     Indication: OSTEOARTHRITIS
     Route: 048
     Dates: start: 20010731, end: 20030912
  2. VIOXX [Suspect]
     Route: 065
     Dates: end: 20040930
  3. VIOXX [Suspect]
     Indication: MUSCLE SPASMS
     Route: 048
     Dates: start: 20010731, end: 20030912
  4. VIOXX [Suspect]
     Route: 065
     Dates: end: 20040930
  5. DIOVAN [Concomitant]
     Route: 065
  6. TOPROL-XL [Concomitant]
     Route: 065
  7. PROTONIX [Concomitant]
     Route: 065
  8. ALBUTEROL [Concomitant]
     Route: 055

REACTIONS (18)
  - ABDOMINAL PAIN UPPER [None]
  - ARTHROPATHY [None]
  - ATELECTASIS [None]
  - BACK PAIN [None]
  - BLOOD CHOLESTEROL INCREASED [None]
  - BLOOD PRESSURE INCREASED [None]
  - BURSITIS [None]
  - CEREBELLAR HAEMORRHAGE [None]
  - CHRONIC OBSTRUCTIVE PULMONARY DISEASE [None]
  - DRUG INEFFECTIVE [None]
  - DYSPNOEA [None]
  - ENCEPHALOMALACIA [None]
  - GASTROOESOPHAGEAL REFLUX DISEASE [None]
  - HYDROCEPHALUS [None]
  - HYPERTENSION [None]
  - OSTEOARTHRITIS [None]
  - PIRIFORMIS SYNDROME [None]
  - VOMITING [None]
